FAERS Safety Report 9233373 (Version 3)
Quarter: 2013Q2

REPORT INFORMATION
  Report Type: Spontaneous
  Country: IT (occurrence: IT)
  Receive Date: 20130416
  Receipt Date: 20130514
  Transmission Date: 20140414
  Serious: Yes (Other)
  Sender: FDA-Public Use
  Company Number: IT-PFIZER INC-2013115883

PATIENT
  Age: 9 Year
  Sex: Male
  Weight: 29 kg

DRUGS (2)
  1. ZOLOFT [Suspect]
     Indication: ANXIETY
     Dosage: 2.5 ML, UNK
     Route: 048
     Dates: start: 20121213, end: 20130210
  2. ZOLOFT [Suspect]
     Dosage: 1.25 ML, UNK
     Route: 048
     Dates: start: 20130211, end: 20130218

REACTIONS (7)
  - Aggression [Recovering/Resolving]
  - Irritability [Recovered/Resolved]
  - Sleep disorder [Recovered/Resolved]
  - Oppositional defiant disorder [Recovering/Resolving]
  - Self injurious behaviour [Recovering/Resolving]
  - Fear [Recovering/Resolving]
  - Anger [Recovering/Resolving]
